FAERS Safety Report 14732354 (Version 2)
Quarter: 2018Q3

REPORT INFORMATION
  Report Type: Spontaneous
  Country: US (occurrence: US)
  Receive Date: 20180409
  Receipt Date: 20180702
  Transmission Date: 20181010
  Serious: Yes (Hospitalization)
  Sender: FDA-Public Use
  Company Number: US-009507513-1804USA000195

PATIENT
  Sex: Female

DRUGS (1)
  1. NEXPLANON [Suspect]
     Active Substance: ETONOGESTREL
     Indication: CONTRACEPTION
     Dosage: 1 ROD (68 MG), UNK
     Route: 059

REACTIONS (3)
  - Vision blurred [Recovered/Resolved]
  - Eye pain [Recovered/Resolved]
  - Blood pressure increased [Recovered/Resolved]
